FAERS Safety Report 5876821-5 (Version None)
Quarter: 2008Q3

REPORT INFORMATION
  Report Type: 
  Country: None (occurrence: None)
  Receive Date: 20080908
  Receipt Date: 20080908
  Transmission Date: 20090109
  Serious: Yes (Hospitalization)
  Sender: FDA-Public Use
  Company Number: None

PATIENT
  Age: 65 Year
  Sex: Male

DRUGS (15)
  1. CETUXIMAB [Suspect]
     Indication: NON-SMALL CELL LUNG CANCER
     Dates: start: 20080226, end: 20080610
  2. EXTERNAL BEAM RADIATION THERAPY (EBRT) [Suspect]
     Dates: start: 20080304, end: 20080421
  3. LEXAPRO [Concomitant]
  4. VYTORIN [Concomitant]
  5. MG OXIDE [Concomitant]
  6. NADOLOL [Concomitant]
  7. RANEXA [Concomitant]
  8. EXFORGE [Concomitant]
  9. PLAVIX [Concomitant]
  10. ASPIRIN [Concomitant]
  11. RESTORIL [Concomitant]
  12. FLOMAX [Concomitant]
  13. FENTANYL [Concomitant]
  14. COMBIVENT [Concomitant]
  15. DOCUSATE [Concomitant]

REACTIONS (14)
  - ATELECTASIS [None]
  - BIOPSY BRONCHUS ABNORMAL [None]
  - BRONCHIAL DISORDER [None]
  - BRONCHIAL DYSPLASIA [None]
  - BRONCHIAL OBSTRUCTION [None]
  - BRONCHITIS [None]
  - BRONCHOPLEURAL FISTULA [None]
  - CHRONIC OBSTRUCTIVE PULMONARY DISEASE [None]
  - HYDROPNEUMOTHORAX [None]
  - INFLAMMATION [None]
  - NECROSIS [None]
  - PNEUMONIA [None]
  - PULMONARY EMBOLISM [None]
  - RADIATION PNEUMONITIS [None]
